FAERS Safety Report 6223812-0 (Version None)
Quarter: 2009Q2

REPORT INFORMATION
  Report Type: 
  Country: None (occurrence: None)
  Receive Date: 20090611
  Receipt Date: 20090323
  Transmission Date: 20091009
  Serious: No
  Sender: FDA-Public Use
  Company Number: US-ABBOTT-09P-163-0559614-00

PATIENT
  Sex: Male
  Weight: 62.198 kg

DRUGS (2)
  1. HUMIRA [Suspect]
     Indication: PSORIATIC ARTHROPATHY
     Route: 058
     Dates: start: 20090123
  2. CELEBREX [Concomitant]
     Indication: PSORIATIC ARTHROPATHY
     Route: 048

REACTIONS (1)
  - WEIGHT DECREASED [None]
